FAERS Safety Report 4495266-6 (Version None)
Quarter: 2004Q4

REPORT INFORMATION
  Report Type: 
  Country: None (occurrence: None)
  Receive Date: 20041108
  Receipt Date: 20040816
  Transmission Date: 20050328
  Serious: No
  Sender: FDA-Public Use
  Company Number: US-GLAXOSMITHKLINE-A0522233A

PATIENT
  Age: 81 Year
  Sex: Female

DRUGS (3)
  1. AVANDAMET [Suspect]
     Indication: ILL-DEFINED DISORDER
     Dosage: 1TAB TWICE PER DAY
     Route: 048
     Dates: start: 20040802
  2. METFORMIN [Concomitant]
  3. HYDROXYZINE [Concomitant]

REACTIONS (2)
  - EYE SWELLING [None]
  - RASH [None]
